FAERS Safety Report 8560293-6 (Version None)
Quarter: 2012Q3

REPORT INFORMATION
  Report Type: 
  Country: None (occurrence: None)
  Receive Date: 20120802
  Receipt Date: 20120719
  Transmission Date: 20120928
  Serious: Yes (Hospitalization, Other)
  Sender: FDA-Public Use
  Company Number: JP-ROCHE-1091643

PATIENT
  Sex: Female

DRUGS (15)
  1. COPEGUS [Suspect]
     Route: 048
     Dates: start: 20110614, end: 20110619
  2. PEGASYS [Suspect]
     Route: 058
     Dates: start: 20110510, end: 20110530
  3. COPEGUS [Suspect]
     Route: 048
     Dates: start: 20110628, end: 20110913
  4. COPEGUS [Suspect]
     Route: 048
     Dates: start: 20110607, end: 20110613
  5. PEGASYS [Suspect]
     Indication: HEPATITIS C
     Route: 058
     Dates: start: 20110328, end: 20110508
  6. PEGASYS [Suspect]
     Route: 058
     Dates: start: 20110509, end: 20110509
  7. PEGASYS [Suspect]
     Route: 058
     Dates: start: 20110601, end: 20110906
  8. COPEGUS [Suspect]
     Route: 048
     Dates: start: 20110509, end: 20110523
  9. COPEGUS [Suspect]
     Route: 048
     Dates: start: 20110531, end: 20110606
  10. PEGASYS [Suspect]
     Route: 058
     Dates: start: 20110531, end: 20110531
  11. CETIRIZINE HYDROCHLORIDE [Concomitant]
     Route: 048
  12. COPEGUS [Suspect]
     Route: 048
     Dates: start: 20110524, end: 20110530
  13. COPEGUS [Suspect]
     Indication: HEPATITIS C
     Route: 048
     Dates: start: 20110328, end: 20110508
  14. COPEGUS [Suspect]
     Route: 048
     Dates: start: 20110620, end: 20110627
  15. TMC435 (NS3/4A PROTEASE INHIBITOR) [Suspect]
     Indication: HEPATITIS C
     Route: 048
     Dates: start: 20110328, end: 20110620

REACTIONS (2)
  - MYOPATHY [None]
  - SARCOIDOSIS [None]
